FAERS Safety Report 25900294 (Version 1)
Quarter: 2025Q4

REPORT INFORMATION
  Report Type: Spontaneous
  Country: US (occurrence: US)
  Receive Date: 20251009
  Receipt Date: 20251009
  Transmission Date: 20260117
  Serious: Yes (Other)
  Sender: SAMSUNG BIOEPIS
  Company Number: US-SAMSUNG BIOEPIS-SB-2025-33403

PATIENT
  Age: 26 Year
  Sex: Female

DRUGS (1)
  1. USTEKINUMAB [Suspect]
     Active Substance: USTEKINUMAB
     Indication: Psoriasis
     Dates: start: 20251001, end: 20251001

REACTIONS (3)
  - Syncope [Unknown]
  - Injection site pain [Unknown]
  - Injection site hypoaesthesia [Unknown]

NARRATIVE: CASE EVENT DATE: 20251001
